FAERS Safety Report 5740023-3 (Version None)
Quarter: 2008Q2

REPORT INFORMATION
  Report Type: 
  Country: None (occurrence: None)
  Receive Date: 20080516
  Receipt Date: 20080505
  Transmission Date: 20081010
  Serious: Yes (Other)
  Sender: FDA-Public Use
  Company Number: HQWYE894307DEC05

PATIENT
  Sex: Female
  Weight: 86.26 kg

DRUGS (6)
  1. PREMARIN [Suspect]
  2. MENEST [Suspect]
  3. MEDROXYPROGESTERONE ACETATE [Suspect]
  4. ESTRATAB [Suspect]
  5. CYCRIN [Suspect]
  6. PROVERA [Suspect]

REACTIONS (1)
  - BREAST CANCER [None]
